FAERS Safety Report 23943946 (Version 2)
Quarter: 2024Q4

REPORT INFORMATION
  Report Type: Spontaneous
  Country: US (occurrence: US)
  Receive Date: 20240606
  Receipt Date: 20241011
  Transmission Date: 20250114
  Serious: Yes (Other)
  Sender: NOVARTIS
  Company Number: US-002147023-NVSC2024US117916

PATIENT
  Sex: Male
  Weight: 17 kg

DRUGS (1)
  1. KYMRIAH [Suspect]
     Active Substance: TISAGENLECLEUCEL
     Indication: Acute lymphocytic leukaemia
     Dosage: UNK, ONCE/SINGLE (3.4E6 CAR-POSITIVE VIABLE T CELLS)
     Route: 042
     Dates: start: 20240422

REACTIONS (2)
  - Refractory cancer [Unknown]
  - Drug ineffective [Unknown]
